FAERS Safety Report 7672434-3 (Version None)
Quarter: 2011Q3

REPORT INFORMATION
  Report Type: 
  Country: None (occurrence: None)
  Receive Date: 20110809
  Receipt Date: 20110729
  Transmission Date: 20111222
  Serious: Yes (Hospitalization, Other)
  Sender: FDA-Public Use
  Company Number: US-MERCK-0708USA05622

PATIENT
  Age: 46 Year
  Sex: Female
  Weight: 73 kg

DRUGS (4)
  1. FOSAMAX [Suspect]
     Route: 048
     Dates: start: 20020801
  2. FLEXERIL [Concomitant]
     Indication: MUSCLE SPASMS
     Route: 065
     Dates: start: 19890101
  3. FOSAMAX [Suspect]
     Indication: OSTEOPOROSIS
     Route: 048
     Dates: start: 19960201, end: 20050401
  4. CELEBREX [Concomitant]
     Indication: ARTHRITIS
     Route: 065
     Dates: start: 20010101

REACTIONS (32)
  - TONSILLAR DISORDER [None]
  - TOOTH FRACTURE [None]
  - OEDEMA PERIPHERAL [None]
  - SPINAL OSTEOARTHRITIS [None]
  - OSTEONECROSIS OF JAW [None]
  - CERVICAL VERTEBRAL FRACTURE [None]
  - DRUG HYPERSENSITIVITY [None]
  - STASIS DERMATITIS [None]
  - INSOMNIA [None]
  - OSTEOARTHRITIS [None]
  - SYNCOPE [None]
  - MUSCULOSKELETAL DISORDER [None]
  - FALL [None]
  - GALLBLADDER DISORDER [None]
  - ORTHOSTATIC INTOLERANCE [None]
  - ATRIOVENTRICULAR BLOCK [None]
  - ARTHRITIS [None]
  - DEPRESSION [None]
  - ANAEMIA [None]
  - MYOCARDIAL INFARCTION [None]
  - VARICOSE ULCERATION [None]
  - ARTHROPATHY [None]
  - SPINAL DISORDER [None]
  - GASTRIC DISORDER [None]
  - CHRONIC OBSTRUCTIVE PULMONARY DISEASE [None]
  - DENTAL CARIES [None]
  - VENOUS INSUFFICIENCY [None]
  - SINUS DISORDER [None]
  - APPENDIX DISORDER [None]
  - CELLULITIS [None]
  - SKIN ULCER [None]
  - BALANCE DISORDER [None]
